FAERS Safety Report 9056211 (Version 1)
Quarter: 2013Q1

REPORT INFORMATION
  Report Type: Spontaneous
  Country: IT (occurrence: IT)
  Receive Date: 20130205
  Receipt Date: 20130205
  Transmission Date: 20140127
  Serious: Yes (Hospitalization)
  Sender: FDA-Public Use
  Company Number: IT-ELI_LILLY_AND_COMPANY-IT201301002682

PATIENT
  Age: 75 None
  Sex: Male

DRUGS (8)
  1. ALIMTA [Suspect]
     Indication: LUNG ADENOCARCINOMA
     Dosage: 600 MG, PER CYCLE
     Route: 042
     Dates: start: 20121102, end: 20121214
  2. CARBOPLATIN [Concomitant]
     Dosage: 400 MG, UNK
     Route: 042
  3. PREDNISONE [Concomitant]
  4. FOLINA [Concomitant]
  5. SINVACOR [Concomitant]
  6. URSODEOXYCHOLIC ACID [Concomitant]
  7. MISOPROSTOL [Concomitant]
  8. BISOPROLOL HEMIFUMARATE [Concomitant]

REACTIONS (4)
  - Angina pectoris [Unknown]
  - Haemoglobin decreased [Unknown]
  - Headache [Unknown]
  - Off label use [Unknown]
